FAERS Safety Report 9494525 (Version 4)
Quarter: 2014Q1

REPORT INFORMATION
  Report Type: Spontaneous
  Country: JP (occurrence: JP)
  Receive Date: 20130903
  Receipt Date: 20140310
  Transmission Date: 20141002
  Serious: Yes (Life-Threatening, Hospitalization, Other)
  Sender: FDA-Public Use
  Company Number: JP-PFIZER INC-2013252461

PATIENT
  Age: 84 Year
  Sex: Male
  Weight: 60 kg

DRUGS (5)
  1. LYRICA [Suspect]
     Indication: LUMBAR SPINAL STENOSIS
     Dosage: 150 MG, DAILY
     Route: 048
     Dates: start: 20130313, end: 20130829
  2. CARTEOLOL [Suspect]
     Indication: GLAUCOMA
     Dosage: UNK
     Route: 047
  3. TRAMCET [Concomitant]
     Dosage: UNK
     Route: 048
  4. GLIMICRON [Concomitant]
     Indication: DIABETES MELLITUS
     Dosage: UNK
     Route: 048
     Dates: end: 20130829
  5. MAG-LAX [Concomitant]
     Indication: CONSTIPATION
     Dosage: UNK
     Route: 048

REACTIONS (6)
  - Bradycardia [Recovered/Resolved]
  - Sick sinus syndrome [Recovered/Resolved]
  - Adams-Stokes syndrome [Recovered/Resolved]
  - Atrioventricular block complete [Recovered/Resolved]
  - Renal impairment [Recovered/Resolved]
  - Cardiac failure [Recovered/Resolved]
